FAERS Safety Report 12083839 (Version 1)
Quarter: 2016Q1

REPORT INFORMATION
  Report Type: Spontaneous
  Country: US (occurrence: None)
  Receive Date: 20160216
  Receipt Date: 20160216
  Transmission Date: 20160526
  Serious: Yes (Life-Threatening, Hospitalization)
  Sender: FDA-Public Use
  Company Number: None

PATIENT
  Age: 32 Year
  Sex: Female
  Weight: 95.26 kg

DRUGS (4)
  1. VIORELE [Suspect]
     Active Substance: DESOGESTREL\ETHINYL ESTRADIOL
     Indication: CONTRACEPTION
     Dosage: 1 TABLET ONCE DAILY TAKEN BY MOUTH?DATES OF USE - 5+ YEARS
     Route: 048
  2. HUMULIN R [Concomitant]
     Active Substance: INSULIN HUMAN
  3. INSULIN [Concomitant]
     Active Substance: INSULIN NOS
  4. LEVOTHYROXINE. [Concomitant]
     Active Substance: LEVOTHYROXINE

REACTIONS (2)
  - Pulmonary embolism [None]
  - Blood pressure increased [None]

NARRATIVE: CASE EVENT DATE: 20160120
